FAERS Safety Report 6980253-6 (Version None)
Quarter: 2010Q3

REPORT INFORMATION
  Report Type: 
  Country: None (occurrence: None)
  Receive Date: 20100909
  Receipt Date: 20100828
  Transmission Date: 20110219
  Serious: Yes (Hospitalization)
  Sender: FDA-Public Use
  Company Number: ENTC2010-0293

PATIENT
  Age: 84 Year
  Sex: Female

DRUGS (14)
  1. STALEVO 100 [Suspect]
     Indication: PARKINSONISM
  2. AZILECT [Concomitant]
  3. DURAGESIC-100 [Concomitant]
  4. CIPRALEX [Concomitant]
  5. TRAMADOL HCL [Concomitant]
  6. RIVOTRIL [Concomitant]
  7. FLUID/ELECTROLYTE REPLACEMENT THERAPY [Concomitant]
  8. MAGNESIUM [Concomitant]
  9. SINEMET [Concomitant]
  10. SINEMET CR [Concomitant]
  11. CALCIFEROL [Concomitant]
  12. PANADO [Concomitant]
  13. OCUVITE LUTEIN [Concomitant]
  14. ACLASTA [Concomitant]

REACTIONS (12)
  - ANXIETY [None]
  - CONFUSIONAL STATE [None]
  - DELUSION [None]
  - DYSKINESIA [None]
  - HALLUCINATION, VISUAL [None]
  - HYPERHIDROSIS [None]
  - HYPERTENSION [None]
  - PSYCHOTIC DISORDER [None]
  - PYREXIA [None]
  - RENAL FAILURE [None]
  - RHABDOMYOLYSIS [None]
  - TACHYCARDIA [None]
